FAERS Safety Report 10615679 (Version 1)
Quarter: 2014Q4

REPORT INFORMATION
  Report Type: Spontaneous
  Country: US (occurrence: None)
  Receive Date: 20141125
  Receipt Date: 20141125
  Transmission Date: 20150529
  Serious: Yes (Hospitalization)
  Sender: FDA-Public Use
  Company Number: None

PATIENT
  Age: 59 Year
  Sex: Male
  Weight: 112 kg

DRUGS (5)
  1. PERCOCET [Concomitant]
     Active Substance: ACETAMINOPHEN\OXYCODONE HYDROCHLORIDE
  2. REQUIP [Concomitant]
     Active Substance: ROPINIROLE HYDROCHLORIDE
  3. ZOCOR [Concomitant]
     Active Substance: SIMVASTATIN
  4. MOBIC [Suspect]
     Active Substance: MELOXICAM
     Indication: PAIN
     Dosage: 1 TABLET QD ORAL
     Route: 048
     Dates: start: 20141110, end: 20141123
  5. NEURONITN [Concomitant]

REACTIONS (2)
  - Angioedema [None]
  - Dysphagia [None]

NARRATIVE: CASE EVENT DATE: 20141123
